FAERS Safety Report 5818290-7 (Version None)
Quarter: 2008Q3

REPORT INFORMATION
  Report Type: 
  Country: None (occurrence: None)
  Receive Date: 20080717
  Receipt Date: 20080707
  Transmission Date: 20090109
  Serious: Yes (Death, Other)
  Sender: FDA-Public Use
  Company Number: 2008JP003203

PATIENT
  Age: 17 Year
  Sex: Male

DRUGS (5)
  1. FUNGUARD  (MICAFUNGIN) INJECTION [Suspect]
     Indication: INFECTION PROPHYLAXIS
     Dosage: 50 MG,
  2. CYCLOPHOSPHAMIDE      (CYCLOPHOSPHAMIDE) FORMULATION UNKNOWN [Concomitant]
  3. CYTARABINE (CYTARABINE) FORMULATION UNKNOWN [Concomitant]
  4. LIPOSOMAL AMPHOTERICIN B FORMULATION UNKNOWN [Concomitant]
  5. FLUCONAZOLE (FLUCONAZOLE) FORMULATION UNKNOWN [Concomitant]

REACTIONS (3)
  - CRYPTOCOCCOSIS [None]
  - FUNGAL SEPSIS [None]
  - TRICHOSPORON INFECTION [None]
